FAERS Safety Report 5406787-3 (Version None)
Quarter: 2007Q3

REPORT INFORMATION
  Report Type: 
  Country: None (occurrence: None)
  Receive Date: 20070802
  Receipt Date: 20070719
  Transmission Date: 20080115
  Serious: Yes (Hospitalization, Congenital Anomaly)
  Sender: FDA-Public Use
  Company Number: S07-DEN-03230-02

PATIENT
  Sex: Male
  Weight: 3.415 kg

DRUGS (1)
  1. CITALOPRAM HYDROBROMIDE [Suspect]
     Dates: start: 20070412, end: 20070523

REACTIONS (5)
  - APNOEA [None]
  - ASTHENIA [None]
  - DRUG EXPOSURE DURING PREGNANCY [None]
  - NEONATAL DISORDER [None]
  - PALLOR [None]
